FAERS Safety Report 9504083 (Version 2)
Quarter: 2013Q3

REPORT INFORMATION
  Report Type: Report from Study
  Country: JP (occurrence: JP)
  Receive Date: 20130906
  Receipt Date: 20130919
  Transmission Date: 20140515
  Serious: Yes (Hospitalization)
  Sender: FDA-Public Use
  Company Number: JP-NOVOPROD-386045

PATIENT
  Age: 77 Year
  Sex: Male

DRUGS (25)
  1. NOVONORM [Suspect]
     Indication: TYPE 2 DIABETES MELLITUS
     Dosage: 0.75 MG, QD
     Route: 048
     Dates: start: 20120730, end: 20121124
  2. EQUA [Suspect]
     Indication: PRODUCT USED FOR UNKNOWN INDICATION
     Dosage: 100 MG, QD
     Route: 048
     Dates: end: 20121124
  3. JANUVIA [Concomitant]
     Dosage: 50 MG, QD
     Route: 048
  4. SEIBULE [Concomitant]
     Dosage: 225 MG, QD
     Route: 048
     Dates: end: 20121124
  5. METGLUCO [Concomitant]
     Dosage: 500 MG, QD
     Route: 048
     Dates: end: 20121124
  6. LANTUS [Concomitant]
     Dosage: UNKNOWN
     Route: 058
  7. AMLODIN [Concomitant]
     Dosage: UNKNOWN
     Route: 048
     Dates: end: 20121124
  8. RASILEZ [Concomitant]
     Dosage: UNKNOWN
     Route: 048
     Dates: end: 20121124
  9. ARGAMATE [Concomitant]
     Dosage: UNKNOWN
     Route: 048
     Dates: end: 20121124
  10. LENDORMIN [Concomitant]
     Dosage: UNKNOWN
     Route: 048
     Dates: end: 20121124
  11. XYZAL [Concomitant]
     Dosage: UNKNOWN
     Dates: end: 20121124
  12. ZESULAN [Concomitant]
     Dosage: UNKNOWN
     Route: 048
     Dates: end: 20121124
  13. PLETAAL [Concomitant]
     Dosage: UNKNOWN
     Route: 048
     Dates: end: 20121124
  14. EPADEL                             /01682402/ [Concomitant]
     Dosage: UNKNOWN
     Route: 048
     Dates: end: 20121124
  15. LOXONIN [Concomitant]
     Dosage: UNKNOWN
     Dates: end: 20121124
  16. FOIPAN [Concomitant]
     Dosage: UNKNOWN
     Route: 048
     Dates: end: 20121124
  17. PROHEPARUM [Concomitant]
     Dosage: UNKNOWN
     Route: 048
     Dates: end: 20121124
  18. GASMOTIN [Concomitant]
     Dosage: UNKNOWN
     Route: 048
     Dates: end: 20121124
  19. PHYSIO 140 [Concomitant]
     Dosage: UNKNOWN
     Route: 065
     Dates: start: 20121124, end: 20121124
  20. UNASYN S [Concomitant]
     Dosage: UNKNOWN
     Route: 065
     Dates: start: 20121124
  21. DALACIN-S [Concomitant]
     Dosage: UNKNOWN
     Route: 065
     Dates: start: 20121124
  22. POTACOL R [Concomitant]
     Dosage: UNKNOWN
     Route: 065
     Dates: start: 20121124
  23. BFLUID [Concomitant]
     Dosage: UNKNOWN
     Route: 065
     Dates: start: 20121124
  24. VITAMEDIN                          /00176001/ [Concomitant]
     Dosage: UNKNOWN
     Route: 065
     Dates: start: 20121124
  25. SOLITA T                           /07473201/ [Concomitant]
     Dosage: UNKNOWN
     Route: 065
     Dates: start: 20121124

REACTIONS (1)
  - Ileus [Recovered/Resolved]
